FAERS Safety Report 17016246 (Version 1)
Quarter: 2019Q4

REPORT INFORMATION
  Report Type: Spontaneous
  Country: IL (occurrence: IL)
  Receive Date: 20191111
  Receipt Date: 20191111
  Transmission Date: 20200122
  Serious: Yes (Other)
  Sender: FDA-Public Use
  Company Number: IL-JNJFOC-20191102909

PATIENT
  Age: 19 Year
  Sex: Female

DRUGS (3)
  1. ADALIMUMAB [Suspect]
     Active Substance: ADALIMUMAB
     Indication: CROHN^S DISEASE
     Route: 065
  2. STELARA [Suspect]
     Active Substance: USTEKINUMAB
     Indication: CROHN^S DISEASE
     Route: 058
  3. STELARA [Suspect]
     Active Substance: USTEKINUMAB
     Dosage: FROM WEEK 10 TO WEEK 52 AFTER IV INDUCTION
     Route: 058

REACTIONS (3)
  - Crohn^s disease [Recovered/Resolved]
  - Intestinal obstruction [Recovered/Resolved]
  - Drug ineffective [Unknown]
